FAERS Safety Report 9618116 (Version 1)
Quarter: 2013Q4

REPORT INFORMATION
  Report Type: Report from Study
  Country: CN (occurrence: CN)
  Receive Date: 20131013
  Receipt Date: 20131013
  Transmission Date: 20140711
  Serious: Yes (Death)
  Sender: FDA-Public Use
  Company Number: CN-ROCHE-1288519

PATIENT
  Age: 65 Year
  Sex: Male
  Weight: 45 kg

DRUGS (1)
  1. AVASTIN [Suspect]
     Indication: RECTAL CANCER
     Route: 042
     Dates: start: 20121120

REACTIONS (1)
  - Metastases to central nervous system [Fatal]
